FAERS Safety Report 11467767 (Version 1)
Quarter: 2015Q3

REPORT INFORMATION
  Report Type: Spontaneous
  Country: US (occurrence: US)
  Receive Date: 20150908
  Receipt Date: 20150908
  Transmission Date: 20151125
  Serious: No
  Sender: FDA-Public Use
  Company Number: US-VERTEX PHARMACEUTICALS-2015-003491

PATIENT
  Sex: Female

DRUGS (3)
  1. AQUADEKS [Concomitant]
  2. ORKAMBI [Suspect]
     Active Substance: IVACAFTOR\LUMACAFTOR
     Indication: CYSTIC FIBROSIS
     Dosage: 400 MG/250 MG BID
     Route: 048
     Dates: start: 20150804
  3. PULMOZYME [Concomitant]
     Active Substance: DORNASE ALFA

REACTIONS (3)
  - Dizziness [Unknown]
  - Vomiting [Unknown]
  - Nausea [Unknown]
